FAERS Safety Report 22384068 (Version 1)
Quarter: 2023Q2

REPORT INFORMATION
  Report Type: Spontaneous
  Country: US (occurrence: None)
  Receive Date: 20230527
  Receipt Date: 20230527
  Transmission Date: 20230722
  Serious: Yes (Other)
  Sender: FDA-Public Use
  Company Number: None

PATIENT
  Age: 35 Month
  Sex: Female
  Weight: 14.4 kg

DRUGS (4)
  1. MONTELUKAST [Suspect]
     Active Substance: MONTELUKAST SODIUM
     Indication: Middle ear effusion
     Dosage: FREQUENCY : AT BEDTIME;?
     Route: 048
     Dates: start: 20230417, end: 20230520
  2. FLONASE [Suspect]
     Active Substance: FLUTICASONE PROPIONATE
  3. FLUTICASONE PROPIONATE [Concomitant]
     Active Substance: FLUTICASONE PROPIONATE
  4. Olly kids multi + priobiotic [Concomitant]

REACTIONS (3)
  - Aggression [None]
  - Screaming [None]
  - Thinking abnormal [None]
